FAERS Safety Report 9392931 (Version 1)
Quarter: 2013Q3

REPORT INFORMATION
  Report Type: Spontaneous
  Country: US (occurrence: US)
  Receive Date: 20130710
  Receipt Date: 20130710
  Transmission Date: 20140515
  Serious: No
  Sender: FDA-Public Use
  Company Number: US-PFIZER INC-2013202168

PATIENT
  Age: 65 Year
  Sex: Female
  Weight: 57 kg

DRUGS (2)
  1. CHANTIX [Suspect]
     Indication: SMOKING CESSATION THERAPY
     Dosage: 0.5 MG, 1X/DAY
     Route: 048
     Dates: start: 201305, end: 201305
  2. CHANTIX [Suspect]
     Dosage: UNK
     Route: 048
     Dates: start: 201306, end: 201306

REACTIONS (2)
  - Emotional disorder [Unknown]
  - Aversion [Unknown]
